FAERS Safety Report 6530337-1 (Version None)
Quarter: 2010Q1

REPORT INFORMATION
  Report Type: 
  Country: None (occurrence: None)
  Receive Date: 20100107
  Receipt Date: 20091227
  Transmission Date: 20100710
  Serious: Yes (Life-Threatening)
  Sender: FDA-Public Use
  Company Number: JP-BAXTER-2009BH019966

PATIENT
  Age: 15 Year
  Sex: Female

DRUGS (4)
  1. HOLOXAN BAXTER [Suspect]
     Indication: RHABDOMYOSARCOMA
     Route: 065
     Dates: start: 20091109, end: 20091113
  2. LASTET [Suspect]
     Indication: RHABDOMYOSARCOMA
     Route: 042
     Dates: start: 20091109, end: 20091113
  3. VINCRISTINE SULFATE [Suspect]
     Indication: RHABDOMYOSARCOMA
     Route: 042
     Dates: start: 20091116
  4. COSMEGEN [Suspect]
     Indication: RHABDOMYOSARCOMA
     Route: 065
     Dates: start: 20091109, end: 20091113

REACTIONS (1)
  - RHABDOMYOLYSIS [None]
